FAERS Safety Report 9204332 (Version 4)
Quarter: 2013Q4

REPORT INFORMATION
  Report Type: Report from Study
  Country: IT (occurrence: IT)
  Receive Date: 20130402
  Receipt Date: 20131224
  Transmission Date: 20140711
  Serious: Yes (Hospitalization)
  Sender: FDA-Public Use
  Company Number: IT-ROCHE-1208853

PATIENT
  Sex: Male
  Weight: 70 kg

DRUGS (2)
  1. VEMURAFENIB [Suspect]
     Indication: HAIRY CELL LEUKAEMIA
     Dosage: DATE OF LAST DOSE PRIOR TO SAE: 23/MAR/2013
     Route: 048
     Dates: end: 20130323
  2. VEMURAFENIB [Suspect]
     Route: 048
     Dates: start: 20130402

REACTIONS (2)
  - Face oedema [Recovered/Resolved]
  - Erythema [Recovered/Resolved]
